FAERS Safety Report 13688396 (Version 3)
Quarter: 2017Q3

REPORT INFORMATION
  Report Type: Report from Study
  Country: US (occurrence: US)
  Receive Date: 20170626
  Receipt Date: 20170719
  Transmission Date: 20171127
  Serious: Yes (Hospitalization, Other)
  Sender: FDA-Public Use
  Company Number: US-GILEAD-2017-0277375

PATIENT
  Age: 75 Year
  Sex: Female
  Weight: 64.2 kg

DRUGS (12)
  1. CELEXA [Concomitant]
     Active Substance: CITALOPRAM HYDROBROMIDE
  2. METOPROLOL. [Concomitant]
     Active Substance: METOPROLOL
  3. DILTIAZEM. [Concomitant]
     Active Substance: DILTIAZEM
  4. TADALAFIL [Concomitant]
     Active Substance: TADALAFIL
  5. CARTIA XT [Concomitant]
     Active Substance: DILTIAZEM HYDROCHLORIDE
  6. PREDNISONE. [Concomitant]
     Active Substance: PREDNISONE
  7. FUROSEMIDE. [Concomitant]
     Active Substance: FUROSEMIDE
  8. LASIX [Concomitant]
     Active Substance: FUROSEMIDE
  9. PROAIR HFA [Concomitant]
     Active Substance: ALBUTEROL SULFATE
  10. AMBRISENTAN [Suspect]
     Active Substance: AMBRISENTAN
     Indication: PULMONARY HYPERTENSION
     Dosage: 5 MG, QD
     Route: 048
     Dates: start: 201705, end: 20170605
  11. ADCIRCA [Concomitant]
     Active Substance: TADALAFIL
  12. ASPIRIN 81 [Concomitant]
     Active Substance: ASPIRIN

REACTIONS (5)
  - Face oedema [Recovered/Resolved]
  - Constipation [Unknown]
  - Urinary retention [Unknown]
  - Peripheral swelling [Recovered/Resolved]
  - Nasal congestion [Unknown]

NARRATIVE: CASE EVENT DATE: 20170601
